FAERS Safety Report 18341537 (Version 1)
Quarter: 2020Q4

REPORT INFORMATION
  Report Type: Report from Study
  Country: BR (occurrence: BR)
  Receive Date: 20201004
  Receipt Date: 20201004
  Transmission Date: 20210113
  Serious: Yes (Other)
  Sender: FDA-Public Use
  Company Number: NVSC2020BR266150

PATIENT
  Age: 64 Year
  Sex: Male

DRUGS (1)
  1. TRAVATAN [Suspect]
     Active Substance: TRAVOPROST
     Indication: PRODUCT USED FOR UNKNOWN INDICATION
     Dosage: UNK (MORE THAN EIGHT YEARS AGO)
     Route: 065

REACTIONS (9)
  - Eye pain [Unknown]
  - Visual impairment [Unknown]
  - Glaucoma [Unknown]
  - Intraocular pressure increased [Unknown]
  - Cataract [Unknown]
  - Diabetes mellitus [Unknown]
  - Blindness [Unknown]
  - Hypertension [Unknown]
  - Photophobia [Unknown]

NARRATIVE: CASE EVENT DATE: 20200928
